FAERS Safety Report 4723897-4 (Version None)
Quarter: 2005Q3

REPORT INFORMATION
  Report Type: 
  Country: None (occurrence: None)
  Receive Date: 20050722
  Receipt Date: 20050712
  Transmission Date: 20060218
  Serious: Yes (Other)
  Sender: FDA-Public Use
  Company Number: 2005099761

PATIENT
  Sex: Female

DRUGS (7)
  1. CELEBREX [Suspect]
     Indication: ARTHRALGIA
     Dosage: ORAL
     Route: 048
  2. NEURONTIN [Suspect]
     Indication: SWELLING
     Dosage: 900 MG (300 MG, 3 IN 1 D), ORAL
     Route: 048
  3. GLUCOPHAGE [Concomitant]
  4. GLIPIZIDE [Concomitant]
  5. PLAVIX [Concomitant]
  6. MONOPRIL [Concomitant]
  7. CLONIDINE [Concomitant]

REACTIONS (4)
  - BREAST CANCER FEMALE [None]
  - DRUG INEFFECTIVE [None]
  - OEDEMA PERIPHERAL [None]
  - SOMNOLENCE [None]
